FAERS Safety Report 7773032-3 (Version None)
Quarter: 2011Q3

REPORT INFORMATION
  Report Type: 
  Country: None (occurrence: None)
  Receive Date: 20110922
  Receipt Date: 20110701
  Transmission Date: 20111222
  Serious: No
  Sender: FDA-Public Use
  Company Number: US-ASTRAZENECA-2011SE39711

PATIENT
  Age: 65 Year
  Sex: Female
  Weight: 90.7 kg

DRUGS (14)
  1. SEROQUEL [Suspect]
     Route: 048
     Dates: start: 20110101
  2. SEROQUEL [Suspect]
     Route: 048
     Dates: start: 20080101, end: 20110101
  3. CLONAZEPAM [Concomitant]
     Indication: ANXIETY
     Dosage: AT NIGHT
  4. LEVOTHYROXINE SODIUM [Concomitant]
  5. ZOLPIDEM [Concomitant]
     Indication: SLEEP DISORDER
  6. SEROQUEL [Suspect]
     Indication: SLEEP DISORDER
     Route: 048
     Dates: end: 20080101
  7. SEROQUEL [Suspect]
     Route: 048
     Dates: start: 20110101
  8. TEGRETOL [Concomitant]
  9. PRAVASTATIN [Concomitant]
  10. BONE MEDICINE [Concomitant]
     Indication: OSTEOPOROSIS
  11. SEROQUEL [Suspect]
     Route: 048
     Dates: start: 20080101, end: 20110101
  12. CLONAZEPAM [Concomitant]
     Indication: SLEEP DISORDER
     Dosage: AT NIGHT
  13. THIORIDAZINE HCL [Concomitant]
     Indication: SLEEP DISORDER
  14. SEROQUEL [Suspect]
     Indication: BIPOLAR DISORDER
     Route: 048
     Dates: end: 20080101

REACTIONS (3)
  - INSOMNIA [None]
  - OFF LABEL USE [None]
  - DRUG INEFFECTIVE FOR UNAPPROVED INDICATION [None]
